FAERS Safety Report 11219439 (Version 1)
Quarter: 2015Q2

REPORT INFORMATION
  Report Type: Spontaneous
  Country: US (occurrence: US)
  Receive Date: 20150625
  Receipt Date: 20150625
  Transmission Date: 20150821
  Serious: Yes (Life-Threatening, Hospitalization)
  Sender: FDA-Public Use
  Company Number: US-BAYER-2015-363578

PATIENT
  Age: 61 Year
  Sex: Female

DRUGS (1)
  1. GADAVIST [Suspect]
     Active Substance: GADOBUTROL
     Indication: NUCLEAR MAGNETIC RESONANCE IMAGING BRAIN
     Dosage: 3 ML, ONCE
     Route: 042
     Dates: start: 20150622, end: 20150622

REACTIONS (11)
  - Tachycardia [Recovering/Resolving]
  - Nervousness [Recovering/Resolving]
  - Hypotension [Recovering/Resolving]
  - Faecal incontinence [Recovering/Resolving]
  - Speech disorder [Recovering/Resolving]
  - Rash generalised [Recovering/Resolving]
  - Macule [Recovering/Resolving]
  - Use of accessory respiratory muscles [Recovering/Resolving]
  - Anaphylactic reaction [Recovering/Resolving]
  - Dyspnoea [Recovering/Resolving]
  - Erythema [Recovering/Resolving]

NARRATIVE: CASE EVENT DATE: 20150622
